FAERS Safety Report 6845237-7 (Version None)
Quarter: 2010Q3

REPORT INFORMATION
  Report Type: 
  Country: None (occurrence: None)
  Receive Date: 20100715
  Receipt Date: 20070814
  Transmission Date: 20110219
  Serious: No
  Sender: FDA-Public Use
  Company Number: US-PFIZER INC-2007068616

PATIENT
  Age: 26 Year
  Sex: Female
  Weight: 59.5 kg

DRUGS (2)
  1. CHANTIX [Suspect]
     Indication: SMOKING CESSATION THERAPY
     Dates: start: 20070801
  2. ORAL CONTRACEPTIVE NOS [Concomitant]
     Indication: CONTRACEPTION

REACTIONS (2)
  - NAUSEA [None]
  - VOMITING [None]
